FAERS Safety Report 9608976 (Version 1)
Quarter: 2013Q4

REPORT INFORMATION
  Report Type: Report from Study
  Country: JP (occurrence: JP)
  Receive Date: 20131009
  Receipt Date: 20131009
  Transmission Date: 20140711
  Serious: Yes (Hospitalization)
  Sender: FDA-Public Use
  Company Number: JP-UCBSA-099276

PATIENT
  Age: 29 Year
  Sex: Male
  Weight: 80 kg

DRUGS (9)
  1. E KEPPRA [Suspect]
     Indication: COMPLEX PARTIAL SEIZURES
     Route: 048
     Dates: start: 20110927, end: 20111006
  2. E KEPPRA [Suspect]
     Indication: SIMPLE PARTIAL SEIZURES
     Route: 048
     Dates: start: 20110927, end: 20111006
  3. E KEPPRA [Suspect]
     Indication: COMPLEX PARTIAL SEIZURES
     Route: 048
     Dates: start: 20111007, end: 20111007
  4. E KEPPRA [Suspect]
     Indication: SIMPLE PARTIAL SEIZURES
     Route: 048
     Dates: start: 20111007, end: 20111007
  5. E KEPPRA [Suspect]
     Indication: COMPLEX PARTIAL SEIZURES
     Route: 048
     Dates: start: 20111008, end: 20111030
  6. E KEPPRA [Suspect]
     Indication: SIMPLE PARTIAL SEIZURES
     Route: 048
     Dates: start: 20111008, end: 20111030
  7. PHENYTOIN [Concomitant]
     Indication: EPILEPSY
     Route: 048
  8. CARBAMAZEPINE [Concomitant]
     Indication: EPILEPSY
     Route: 048
  9. CLOBAZAM [Concomitant]
     Indication: EPILEPSY
     Route: 048

REACTIONS (2)
  - Epilepsy [Recovered/Resolved]
  - Somnolence [Recovered/Resolved]
